FAERS Safety Report 7238342-7 (Version None)
Quarter: 2011Q1

REPORT INFORMATION
  Report Type: 
  Country: None (occurrence: None)
  Receive Date: 20110121
  Receipt Date: 20101229
  Transmission Date: 20110831
  Serious: Yes (Hospitalization)
  Sender: FDA-Public Use
  Company Number: US-ALEXION-A201001678

PATIENT
  Sex: Male

DRUGS (1)
  1. SOLIRIS [Suspect]
     Indication: PAROXYSMAL NOCTURNAL HAEMOGLOBINURIA
     Dosage: UNK
     Route: 042
     Dates: start: 20101101

REACTIONS (6)
  - HAEMOGLOBINURIA [None]
  - CHROMATURIA [None]
  - CHOLELITHIASIS [None]
  - BLOOD DISORDER [None]
  - ABDOMINAL PAIN [None]
  - JAUNDICE [None]
